FAERS Safety Report 25413051 (Version 1)
Quarter: 2025Q2

REPORT INFORMATION
  Report Type: Spontaneous
  Country: US (occurrence: None)
  Receive Date: 20250607
  Receipt Date: 20250607
  Transmission Date: 20250717
  Serious: Yes (Other)
  Sender: FDA-CTU
  Company Number: None

PATIENT
  Age: 77 Year
  Sex: Female

DRUGS (1)
  1. IMATINIB MESYLATE [Suspect]
     Active Substance: IMATINIB MESYLATE
     Indication: Philadelphia positive chronic myeloid leukaemia
     Dosage: FREQUENCY : DAILY;?

REACTIONS (7)
  - Alopecia [None]
  - Hair texture abnormal [None]
  - Loss of consciousness [None]
  - Arterial stenosis [None]
  - Hepatic cancer [None]
  - Lung neoplasm malignant [None]
  - Gastrointestinal carcinoma [None]
